FAERS Safety Report 16707128 (Version 1)
Quarter: 2019Q3

REPORT INFORMATION
  Report Type: Spontaneous
  Country: US (occurrence: US)
  Receive Date: 20190628
  Receipt Date: 20190628
  Transmission Date: 20191004
  Serious: Yes (Hospitalization, Disabling)
  Sender: FDA-Public Use
  Company Number: None

PATIENT
  Age: 74 Year
  Sex: Female
  Weight: 75 kg

DRUGS (1)
  1. LEVOFLOXACIN 500 MADE IN INDIA [Suspect]
     Active Substance: LEVOFLOXACIN
     Indication: CYSTITIS

REACTIONS (6)
  - Fall [None]
  - Walking aid user [None]
  - Tendon rupture [None]
  - Hip fracture [None]
  - Dizziness [None]
  - Visual impairment [None]

NARRATIVE: CASE EVENT DATE: 20190320
